FAERS Safety Report 6521448-5 (Version None)
Quarter: 2009Q4

REPORT INFORMATION
  Report Type: 
  Country: None (occurrence: None)
  Receive Date: 20091230
  Receipt Date: 20091223
  Transmission Date: 20100525
  Serious: Yes (Other)
  Sender: FDA-Public Use
  Company Number: FR-ROCHE-676277

PATIENT
  Age: 58 Year
  Sex: Male

DRUGS (1)
  1. TAMIFLU [Suspect]
     Indication: DRUG USE FOR UNKNOWN INDICATION
     Dosage: FREQUENCY: DAILY; DOSE: 2 DF
     Route: 065
     Dates: start: 20091217, end: 20091221

REACTIONS (3)
  - DELIRIUM [None]
  - NIGHTMARE [None]
  - VERTIGO [None]
